FAERS Safety Report 25729299 (Version 1)
Quarter: 2025Q3

REPORT INFORMATION
  Report Type: Spontaneous
  Country: US (occurrence: US)
  Receive Date: 20250827
  Receipt Date: 20250827
  Transmission Date: 20251020
  Serious: No
  Sender: ROCHE
  Company Number: US-ROCHE-10000368176

PATIENT
  Age: 60 Year
  Sex: Female
  Weight: 72.57 kg

DRUGS (2)
  1. XOLAIR PFS [Suspect]
     Active Substance: OMALIZUMAB
     Indication: Idiopathic urticaria
     Route: 058
     Dates: start: 202408
  2. XOLAIR PFS [Suspect]
     Active Substance: OMALIZUMAB
     Indication: Urticaria
     Dosage: (STRENGTH REPORTED AS: 300MG/2ML)
     Route: 058
     Dates: start: 202502

REACTIONS (4)
  - Product dose omission issue [Unknown]
  - Urticaria [Recovered/Resolved]
  - Device issue [Unknown]
  - Off label use [Unknown]

NARRATIVE: CASE EVENT DATE: 20250815
